FAERS Safety Report 6574907-3 (Version None)
Quarter: 2010Q1

REPORT INFORMATION
  Report Type: 
  Country: None (occurrence: None)
  Receive Date: 20100209
  Receipt Date: 20090216
  Transmission Date: 20100710
  Serious: Yes (Hospitalization)
  Sender: FDA-Public Use
  Company Number: SE-ASTRAZENECA-2007SE05000

PATIENT
  Age: 28 Year
  Sex: Male

DRUGS (2)
  1. ENTOCORT EC [Suspect]
     Indication: COLITIS COLLAGENOUS
     Dosage: 2 TIMES/DAY
     Route: 048
     Dates: start: 20010101
  2. ENTOCORT EC [Suspect]
     Indication: CROHN'S DISEASE
     Dosage: 2 TIMES/DAY
     Route: 048
     Dates: start: 20010101

REACTIONS (5)
  - ALCOHOL ABUSE [None]
  - DEPRESSION [None]
  - HYPOMANIA [None]
  - PERSONALITY DISORDER [None]
  - SUICIDE ATTEMPT [None]
